FAERS Safety Report 23295534 (Version 1)
Quarter: 2023Q4

REPORT INFORMATION
  Report Type: Spontaneous
  Country: KR (occurrence: KR)
  Receive Date: 20231214
  Receipt Date: 20231214
  Transmission Date: 20240109
  Serious: Yes (Other)
  Sender: FDA-Public Use
  Company Number: KR-BAYER-2023A175646

PATIENT
  Age: 64 Year
  Sex: Male

DRUGS (1)
  1. STIVARGA [Suspect]
     Active Substance: REGORAFENIB
     Indication: Mixed hepatocellular cholangiocarcinoma
     Dosage: 160 MG, QD
     Dates: start: 20201013

REACTIONS (1)
  - Cleft palate [Recovered/Resolved]

NARRATIVE: CASE EVENT DATE: 20201104
